FAERS Safety Report 4522821-7 (Version None)
Quarter: 2004Q4

REPORT INFORMATION
  Report Type: 
  Country: None (occurrence: None)
  Receive Date: 20041209
  Receipt Date: 20030605
  Transmission Date: 20050328
  Serious: Yes (Death, Other)
  Sender: FDA-Public Use
  Company Number: US-MERCK-0306USA00750

PATIENT
  Age: 63 Year
  Sex: Male
  Weight: 102 kg

DRUGS (3)
  1. VIOXX [Suspect]
     Route: 048
     Dates: start: 20000701
  2. ULTRAM [Concomitant]
     Route: 065
     Dates: start: 20000612
  3. ZESTRIL [Concomitant]
     Route: 065
     Dates: start: 20000410

REACTIONS (6)
  - ADVERSE EVENT [None]
  - ANGINA PECTORIS [None]
  - BLOOD PRESSURE INCREASED [None]
  - CONVULSION [None]
  - DEATH [None]
  - PSORIASIS [None]
